FAERS Safety Report 9767063 (Version 1)
Quarter: 2013Q4

REPORT INFORMATION
  Report Type: Spontaneous
  Country: US (occurrence: None)
  Receive Date: 20131216
  Receipt Date: 20131216
  Transmission Date: 20140711
  Serious: Yes (Hospitalization)
  Sender: FDA-Public Use
  Company Number: None

PATIENT
  Age: 48 Year
  Sex: Male

DRUGS (1)
  1. TECFIDERA 240MG BIOGEN IDEC [Suspect]
     Indication: MULTIPLE SCLEROSIS
     Route: 048
     Dates: start: 20130820

REACTIONS (6)
  - Abdominal pain upper [None]
  - Influenza like illness [None]
  - Headache [None]
  - Retching [None]
  - Constipation [None]
  - Parosmia [None]
